FAERS Safety Report 20816660 (Version 1)
Quarter: 2022Q2

REPORT INFORMATION
  Report Type: Spontaneous
  Country: US (occurrence: US)
  Receive Date: 20220512
  Receipt Date: 20220512
  Transmission Date: 20220721
  Serious: No
  Sender: FDA-Public Use
  Company Number: US-BRISTOL-MYERS SQUIBB COMPANY-2022-038427

PATIENT
  Age: 55 Year
  Sex: Female

DRUGS (32)
  1. REVLIMID [Suspect]
     Active Substance: LENALIDOMIDE
     Indication: Plasma cell myeloma
     Dosage: TAKE 1 CAPSULE BY MOUTH DAILY ON DAYS 1 TO 21 OF EACH 28-DAY CYCLE.TAKE WHOLE WITH WATER AT THE SAME
     Route: 048
     Dates: start: 20220301, end: 202203
  2. VITAMIN B12 TAB [Concomitant]
     Indication: Product used for unknown indication
  3. CALCIUM\CHOLECALCIFEROL [Concomitant]
     Active Substance: CALCIUM\CHOLECALCIFEROL
     Indication: Product used for unknown indication
  4. ALBUTEROL TAB [Concomitant]
     Indication: Product used for unknown indication
  5. BIOTIN TAB [Concomitant]
     Indication: Product used for unknown indication
  6. BUPRENORPHINE [Concomitant]
     Active Substance: BUPRENORPHINE
  7. CLONAZEPAM [Concomitant]
     Active Substance: CLONAZEPAM
     Indication: Product used for unknown indication
  8. DICLOFENAC [Concomitant]
     Active Substance: DICLOFENAC
     Indication: Product used for unknown indication
  9. EFFEXOR XR CAP [Concomitant]
     Indication: Product used for unknown indication
  10. FISH OIL  CAP [Concomitant]
     Indication: Product used for unknown indication
  11. FLONASE ALGY SPR [Concomitant]
     Indication: Product used for unknown indication
  12. FLUTICASONE SPR [Concomitant]
     Indication: Product used for unknown indication
  13. FOLIC ACID TAB [Concomitant]
     Indication: Product used for unknown indication
  14. FOLIC ACID TAB [Concomitant]
     Indication: Product used for unknown indication
  15. GABAPENTIN [Concomitant]
     Active Substance: GABAPENTIN
     Indication: Product used for unknown indication
  16. HYDROCODONE TAB [Concomitant]
     Indication: Product used for unknown indication
  17. ACETAMINOPHEN\HYDROCODONE [Concomitant]
     Active Substance: ACETAMINOPHEN\HYDROCODONE
     Indication: Product used for unknown indication
  18. LEVOTHYROXIN TAB [Concomitant]
     Indication: Product used for unknown indication
  19. MAGNESIUM TAB [Concomitant]
     Indication: Product used for unknown indication
  20. METFORMIN TAB [Concomitant]
     Indication: Product used for unknown indication
  21. METHOCARBAM TAB [Concomitant]
     Indication: Product used for unknown indication
  22. METHOTREXATE [Concomitant]
     Active Substance: METHOTREXATE
     Indication: Product used for unknown indication
  23. OMEPRAZOLE SODIUM [Concomitant]
     Active Substance: OMEPRAZOLE SODIUM
     Indication: Product used for unknown indication
  24. POTASSIUM TAB [Concomitant]
     Indication: Product used for unknown indication
  25. PREDNISONE [Concomitant]
     Active Substance: PREDNISONE
     Indication: Product used for unknown indication
  26. PROPRANOLOL TAB [Concomitant]
     Indication: Product used for unknown indication
  27. SAM E TAB [Concomitant]
     Indication: Product used for unknown indication
  28. SULFASALAZINE [Concomitant]
     Active Substance: SULFASALAZINE
     Indication: Product used for unknown indication
  29. TRAZODONE [Concomitant]
     Active Substance: TRAZODONE HYDROCHLORIDE
     Indication: Product used for unknown indication
  30. TYLENOL [Concomitant]
     Active Substance: ACETAMINOPHEN
     Indication: Product used for unknown indication
  31. VENLAFAXINE CAP [Concomitant]
     Indication: Product used for unknown indication
  32. ZINC  TAB [Concomitant]
     Indication: Product used for unknown indication

REACTIONS (1)
  - Swelling face [Unknown]

NARRATIVE: CASE EVENT DATE: 20220303
